FAERS Safety Report 10073812 (Version 1)
Quarter: 2014Q2

REPORT INFORMATION
  Report Type: Spontaneous
  Country: AU (occurrence: AU)
  Receive Date: 20140411
  Receipt Date: 20140411
  Transmission Date: 20141212
  Serious: Yes (Disabling, Other)
  Sender: FDA-Public Use
  Company Number: AU-MERCK-1404AUS004636

PATIENT
  Age: 42 Year
  Sex: Male
  Weight: 85 kg

DRUGS (7)
  1. VICTRELIS 200 MG [Suspect]
     Indication: HEPATITIS C
     Dosage: 800 MG, QID
     Route: 048
     Dates: start: 201403
  2. VICTRELIS 200 MG [Suspect]
     Dosage: 4 DF, TID
     Route: 048
     Dates: start: 2014
  3. PEGINTERFERON ALFA-2B [Suspect]
     Indication: HEPATITIS C
     Dosage: 180, WEEKLY
     Route: 058
     Dates: start: 20140203
  4. RIBAVIRIN [Suspect]
     Indication: HEPATITIS C
     Dosage: 1200, TOTAL DAILY DOSE
     Route: 048
     Dates: start: 20140203
  5. WARFARIN [Concomitant]
     Dosage: 3-5 MG, TOTAL DAILY DOSE
     Route: 048
     Dates: start: 2000
  6. ALPRAZOLAM [Concomitant]
     Dosage: UNK
     Route: 048
     Dates: start: 2011
  7. PRISTIQ [Concomitant]
     Dosage: UNK
     Route: 048
     Dates: start: 2011

REACTIONS (14)
  - Scrotal swelling [Recovered/Resolved]
  - Swelling face [Recovered/Resolved]
  - Erythema [Recovered/Resolved]
  - Anxiety [Recovered/Resolved]
  - Scrotal erythema [Recovered/Resolved]
  - Scrotal pain [Recovered/Resolved]
  - Overdose [Unknown]
  - Gait disturbance [Unknown]
  - Thirst decreased [Unknown]
  - Decreased appetite [Unknown]
  - International normalised ratio abnormal [Unknown]
  - Stress [Unknown]
  - Haemorrhoids [Unknown]
  - Pain [Unknown]
